FAERS Safety Report 9332363 (Version 1)
Quarter: 2013Q2

REPORT INFORMATION
  Report Type: Report from Study
  Country: BR (occurrence: BR)
  Receive Date: 20130606
  Receipt Date: 20130606
  Transmission Date: 20140414
  Serious: Yes (Death, Hospitalization, Other)
  Sender: FDA-Public Use
  Company Number: PHHY2012BR071344

PATIENT
  Age: 82 Year
  Sex: Female
  Weight: 70 kg

DRUGS (3)
  1. SANDOSTATIN LAR [Suspect]
     Indication: ACROMEGALY
     Dosage: 2 AMPOULES OF 20 MG, 1 IN EACH BUTTOCK, EVERY MONTH
     Route: 042
  2. CABERGOLINE [Concomitant]
     Indication: PITUITARY TUMOUR
     Dosage: UNK UKN, UNK
  3. SIMVASTATIN [Concomitant]
     Dosage: UNK UKN, UNK

REACTIONS (5)
  - Death [Fatal]
  - Coma [Unknown]
  - Malaise [Unknown]
  - Movement disorder [Unknown]
  - Neoplasm progression [Not Recovered/Not Resolved]
